FAERS Safety Report 5916574-5 (Version None)
Quarter: 2008Q4

REPORT INFORMATION
  Report Type: 
  Country: None (occurrence: None)
  Receive Date: 20081013
  Receipt Date: 20081003
  Transmission Date: 20090506
  Serious: Yes (Death)
  Sender: FDA-Public Use
  Company Number: CA-MERCK-0809CAN00101

PATIENT
  Age: 76 Year
  Sex: Male

DRUGS (2)
  1. PROSCAR [Suspect]
     Route: 048
     Dates: start: 20060101, end: 20070101
  2. TAMSULOSIN HYDROCHLORIDE [Concomitant]
     Route: 065

REACTIONS (2)
  - DEATH [None]
  - LIVER FUNCTION TEST ABNORMAL [None]
